FAERS Safety Report 17634538 (Version 2)
Quarter: 2020Q2

REPORT INFORMATION
  Report Type: Spontaneous
  Country: US (occurrence: US)
  Receive Date: 20200406
  Receipt Date: 20200507
  Transmission Date: 20200713
  Serious: Yes (Hospitalization)
  Sender: FDA-Public Use
  Company Number: US-ACTELION-A-US2020-204029

PATIENT
  Sex: Female

DRUGS (2)
  1. VELETRI [Suspect]
     Active Substance: EPOPROSTENOL
     Dosage: 25 NG/KG, PER MIN
     Route: 042
     Dates: start: 20200327
  2. VELETRI [Suspect]
     Active Substance: EPOPROSTENOL
     Indication: PULMONARY ARTERIAL HYPERTENSION
     Dosage: 32 NG/KG, PER MIN
     Route: 042

REACTIONS (6)
  - Breast swelling [Unknown]
  - Catheter site haemorrhage [Recovered/Resolved]
  - Pain in jaw [Unknown]
  - Abdominal distension [Unknown]
  - Hospitalisation [Unknown]
  - Diarrhoea [Unknown]
